FAERS Safety Report 25883869 (Version 1)
Quarter: 2025Q4

REPORT INFORMATION
  Report Type: Spontaneous
  Country: US (occurrence: US)
  Receive Date: 20251006
  Receipt Date: 20251006
  Transmission Date: 20260117
  Serious: No
  Sender: MACLEODS
  Company Number: US-MACLEODS PHARMA-MAC2025055424

PATIENT

DRUGS (1)
  1. LEVOTHYROXINE [Suspect]
     Active Substance: LEVOTHYROXINE
     Indication: Product used for unknown indication
     Dosage: NDC 33342-396-44
     Route: 048
     Dates: start: 20250611, end: 20250812

REACTIONS (7)
  - Metabolic function test abnormal [Unknown]
  - Feeling abnormal [Unknown]
  - Lipids increased [Unknown]
  - Food craving [Unknown]
  - Fatigue [Unknown]
  - Product substitution issue [Unknown]
  - Therapeutic response decreased [Unknown]

NARRATIVE: CASE EVENT DATE: 20250812
